FAERS Safety Report 7202688-9 (Version None)
Quarter: 2010Q4

REPORT INFORMATION
  Report Type: 
  Country: None (occurrence: None)
  Receive Date: 20101216
  Receipt Date: 20101209
  Transmission Date: 20110411
  Serious: Yes (Death, Hospitalization, Disabling, Other)
  Sender: FDA-Public Use
  Company Number: 2010SP034645

PATIENT
  Age: 27 Year
  Sex: Female
  Weight: 52.6173 kg

DRUGS (7)
  1. NUVARING [Suspect]
     Indication: ENDOMETRIOSIS
     Dates: start: 20080424, end: 20080620
  2. NUVARING [Suspect]
     Indication: MUSCLE SPASMS
     Dates: start: 20080424, end: 20080620
  3. DOXYCYCLINE [Concomitant]
  4. RETIN-A [Concomitant]
  5. TRIAMCINOLONE [Concomitant]
  6. CLEOCIN [Concomitant]
  7. KETOCONAZOLE [Concomitant]

REACTIONS (25)
  - BRAIN ABSCESS [None]
  - BRAIN CONTUSION [None]
  - BRAIN MIDLINE SHIFT [None]
  - BRONCHOPNEUMONIA [None]
  - CEREBRAL THROMBOSIS [None]
  - CEREBROVASCULAR ACCIDENT [None]
  - HAEMATOMA [None]
  - HEADACHE [None]
  - HYDROCEPHALUS [None]
  - HYPOXIC-ISCHAEMIC ENCEPHALOPATHY [None]
  - INSULIN RESISTANCE [None]
  - INTRACRANIAL ANEURYSM [None]
  - INTRACRANIAL HYPOTENSION [None]
  - INTRACRANIAL PRESSURE INCREASED [None]
  - MENSTRUAL DISORDER [None]
  - MENTAL STATUS CHANGES [None]
  - MIGRAINE [None]
  - MULTIPLE INJURIES [None]
  - PARTIAL SEIZURES [None]
  - PERITONEAL ABSCESS [None]
  - PHARYNGEAL ABSCESS [None]
  - SUBARACHNOID HAEMORRHAGE [None]
  - SUBDURAL HAEMATOMA [None]
  - SUPERIOR SAGITTAL SINUS THROMBOSIS [None]
  - WEANING FAILURE [None]
